FAERS Safety Report 23245888 (Version 1)
Quarter: 2023Q4

REPORT INFORMATION
  Report Type: Spontaneous
  Country: US (occurrence: None)
  Receive Date: 20231129
  Receipt Date: 20231129
  Transmission Date: 20240110
  Serious: No
  Sender: FDA-Public Use
  Company Number: None

PATIENT
  Sex: Female

DRUGS (1)
  1. HUMIRA [Suspect]
     Active Substance: ADALIMUMAB
     Indication: Psoriatic arthropathy
     Dosage: 40MG/0.4ML EVERY 2 WEEKS SUBQ?
     Route: 058
     Dates: start: 202309

REACTIONS (4)
  - Drug ineffective [None]
  - Drug hypersensitivity [None]
  - Urticaria [None]
  - Arthritis [None]
